FAERS Safety Report 6675398-4 (Version None)
Quarter: 2010Q2

REPORT INFORMATION
  Report Type: 
  Country: None (occurrence: None)
  Receive Date: 20100409
  Receipt Date: 20100331
  Transmission Date: 20101027
  Serious: Yes (Other)
  Sender: FDA-Public Use
  Company Number: JP-PFIZER INC-2009312536

PATIENT
  Age: 80 Year
  Sex: Female

DRUGS (3)
  1. CELECOX [Suspect]
     Indication: OSTEOARTHRITIS
     Dosage: 200 MG, UID/1X/DAY
     Route: 048
     Dates: start: 20080430, end: 20080827
  2. NITRODERM [Concomitant]
     Dosage: UNK
     Route: 062
     Dates: start: 20080502, end: 20081229
  3. HYALURONATE SODIUM [Concomitant]
     Dosage: UNK
     Route: 050
     Dates: start: 20080430, end: 20081229

REACTIONS (1)
  - ANGINA PECTORIS [None]
